FAERS Safety Report 6687408-9 (Version None)
Quarter: 2010Q2

REPORT INFORMATION
  Report Type: 
  Country: None (occurrence: None)
  Receive Date: 20100415
  Receipt Date: 20100412
  Transmission Date: 20101027
  Serious: Yes (Hospitalization)
  Sender: FDA-Public Use
  Company Number: FR-GUERBET-20100071

PATIENT
  Age: 52 Year
  Sex: Male

DRUGS (1)
  1. HEXABRIX [Suspect]
     Indication: ARTERIOGRAM CORONARY
     Dosage: 20, ML MILLILITRE(S), 1, 1, TOTAL INTRA-ARTERIAL
     Route: 013
     Dates: start: 20100326, end: 20100326

REACTIONS (1)
  - HYPERSENSITIVITY [None]
